FAERS Safety Report 4675148-7 (Version None)
Quarter: 2005Q2

REPORT INFORMATION
  Report Type: 
  Country: None (occurrence: None)
  Receive Date: 20050526
  Receipt Date: 20050512
  Transmission Date: 20051028
  Serious: Yes (Congenital Anomaly)
  Sender: FDA-Public Use
  Company Number: 2005BI006249

PATIENT
  Sex: Male

DRUGS (1)
  1. AVONEX [Suspect]
     Indication: MULTIPLE SCLEROSIS
     Dosage: IM
     Route: 030

REACTIONS (2)
  - CONGENITAL BOWING OF LONG BONES [None]
  - DRUG EXPOSURE DURING PREGNANCY [None]
